FAERS Safety Report 11803454 (Version 2)
Quarter: 2015Q4

REPORT INFORMATION
  Report Type: Report from Study
  Country: US (occurrence: US)
  Receive Date: 20151204
  Receipt Date: 20151215
  Transmission Date: 20160305
  Serious: Yes (Life-Threatening)
  Sender: FDA-Public Use
  Company Number: US-SEATTLE GENETICS-2015SGN01947

PATIENT

DRUGS (29)
  1. BRENTUXIMAB VEDOTIN [Suspect]
     Active Substance: BRENTUXIMAB VEDOTIN
     Indication: CHRONIC GRAFT VERSUS HOST DISEASE
     Dosage: 1.8 MG/KG, Q3WEEKS
     Route: 042
  2. FAMVIR [Concomitant]
     Active Substance: FAMCICLOVIR
     Dosage: 500 MG, UNK
  3. FLAGYL [Concomitant]
     Active Substance: METRONIDAZOLE\METRONIDAZOLE HYDROCHLORIDE
     Dosage: 500 MG, Q8HR
     Route: 042
  4. SIMETHICONE (DIMETHICONE) [Concomitant]
     Active Substance: DIMETHICONE
     Dosage: 80 MG, Q4HR
     Route: 048
  5. CLOBETASOL PROPIONATE. [Concomitant]
     Active Substance: CLOBETASOL PROPIONATE
     Dosage: 0.05 %, BID
     Route: 061
  6. ZOFRAN [Concomitant]
     Active Substance: ONDANSETRON HYDROCHLORIDE
     Dosage: 8 MG, Q8HR
     Route: 048
  7. VALPROATE [Concomitant]
     Active Substance: VALPROATE SODIUM
     Dosage: 500 MG, Q8HR
     Route: 042
  8. SENNA-GEN [Concomitant]
     Dosage: 2 UNK, BID
     Route: 048
  9. COLACE [Concomitant]
     Active Substance: DOCUSATE SODIUM
     Dosage: 100 MG, UNK
     Route: 048
  10. URSODIOL. [Concomitant]
     Active Substance: URSODIOL
     Dosage: 300 MG, BID
     Route: 048
  11. OMEPRAZOLE. [Concomitant]
     Active Substance: OMEPRAZOLE
     Dosage: 20 MG, QD
     Route: 048
  12. BENADRYL [Concomitant]
     Active Substance: DIPHENHYDRAMINE HYDROCHLORIDE
     Dosage: 25 MG, UNK
     Route: 042
  13. INSULIN [Concomitant]
     Active Substance: INSULIN NOS
  14. DILAUDID [Concomitant]
     Active Substance: HYDROMORPHONE HYDROCHLORIDE
     Dosage: 0.5 MG, Q3HR
     Route: 042
  15. HEPARIN FLUSH [Concomitant]
     Dosage: 5 ML, UNK
     Route: 042
  16. DEXAMETHASONE. [Concomitant]
     Active Substance: DEXAMETHASONE
     Dosage: 0.5 MG, UNK
     Route: 048
  17. EMLA [Concomitant]
     Active Substance: LIDOCAINE\PRILOCAINE
     Route: 061
  18. MEPRON                             /01181501/ [Concomitant]
     Active Substance: ATOVAQUONE
     Dosage: 1500 MG, UNK
  19. CEFEPIME [Concomitant]
     Active Substance: CEFEPIME HYDROCHLORIDE
     Dosage: 2000 MG, Q8HR
     Route: 042
  20. LABETALOL [Concomitant]
     Active Substance: LABETALOL\LABETALOL HYDROCHLORIDE
     Dosage: 200 MG, TID
     Route: 048
  21. LACOSAMIDE [Concomitant]
     Active Substance: LACOSAMIDE
     Dosage: 200 MG, BID
     Route: 042
  22. MIRALAX [Concomitant]
     Active Substance: POLYETHYLENE GLYCOL 3350
     Dosage: 17 G, UNK
     Route: 048
  23. POTASSIUM PHOSPHATE                /00599901/ [Concomitant]
     Dosage: 15 MMOL, UNK
     Route: 042
  24. VANCOMYCIN [Concomitant]
     Active Substance: VANCOMYCIN
     Dosage: 1000 MG, BID
     Route: 042
  25. TYLENOL [Concomitant]
     Active Substance: ACETAMINOPHEN
     Dosage: 650 MG, UNK
     Route: 048
  26. POSACONAZOLE [Concomitant]
     Active Substance: POSACONAZOLE
     Dosage: 400 MG, BID
  27. KEPPRA [Concomitant]
     Active Substance: LEVETIRACETAM
     Dosage: 2000 MG, BID
  28. SOLU-MEDROL [Concomitant]
     Active Substance: METHYLPREDNISOLONE SODIUM SUCCINATE
     Dosage: 20 MG, BID
     Route: 042
  29. HYDRALAZINE [Concomitant]
     Active Substance: HYDRALAZINE HYDROCHLORIDE
     Dosage: 10 MG, UNK
     Route: 042

REACTIONS (2)
  - Posterior reversible encephalopathy syndrome [Unknown]
  - Toxicity to various agents [None]
